FAERS Safety Report 11524370 (Version 1)
Quarter: 2015Q3

REPORT INFORMATION
  Report Type: Spontaneous
  Country: US (occurrence: US)
  Receive Date: 20150903
  Receipt Date: 20150903
  Transmission Date: 20151125
  Serious: No
  Sender: FDA-Public Use
  Company Number: US-ELI_LILLY_AND_COMPANY-US201211003745

PATIENT
  Sex: Female

DRUGS (3)
  1. CYMBALTA [Suspect]
     Active Substance: DULOXETINE HYDROCHLORIDE
     Dosage: 60 MG, QD
     Dates: start: 201301
  2. PROLIA [Concomitant]
     Active Substance: DENOSUMAB
     Dosage: UNK, UNKNOWN
     Route: 065
  3. CYMBALTA [Suspect]
     Active Substance: DULOXETINE HYDROCHLORIDE
     Indication: BACK PAIN
     Dosage: 30 MG, UNK

REACTIONS (6)
  - Fatigue [Unknown]
  - Nausea [Unknown]
  - Pain in jaw [Unknown]
  - Drug ineffective [Unknown]
  - Somnolence [Unknown]
  - Tooth erosion [Unknown]
